FAERS Safety Report 22046881 (Version 1)
Quarter: 2023Q1

REPORT INFORMATION
  Report Type: Spontaneous
  Country: CN (occurrence: CN)
  Receive Date: 20230228
  Receipt Date: 20230228
  Transmission Date: 20230418
  Serious: Yes (Congenital Anomaly)
  Sender: FDA-Public Use
  Company Number: CN-STRIDES ARCOLAB LIMITED-2023SP003015

PATIENT

DRUGS (1)
  1. TENOFOVIR DISOPROXIL FUMARATE [Suspect]
     Active Substance: TENOFOVIR DISOPROXIL FUMARATE
     Indication: Product used for unknown indication
     Dosage: UNK (PATIENT^S MOTHER RECEIVED TENOFOVIR-DISOPROXIL-FUMARATE)
     Route: 064

REACTIONS (2)
  - Cryptorchism [Unknown]
  - Foetal exposure during pregnancy [Unknown]
